FAERS Safety Report 21973790 (Version 1)
Quarter: 2023Q1

REPORT INFORMATION
  Report Type: Spontaneous
  Country: FR (occurrence: FR)
  Receive Date: 20230209
  Receipt Date: 20230209
  Transmission Date: 20230418
  Serious: Yes (Life-Threatening, Other)
  Sender: FDA-Public Use
  Company Number: None

PATIENT

DRUGS (7)
  1. LAMICTAL [Suspect]
     Active Substance: LAMOTRIGINE
     Indication: Product used for unknown indication
     Dosage: 30 DF, QD
     Route: 065
     Dates: start: 20230107
  2. AMITRIPTYLINE HYDROCHLORIDE [Suspect]
     Active Substance: AMITRIPTYLINE HYDROCHLORIDE
     Indication: Product used for unknown indication
     Dosage: 57 DF, QD
     Route: 065
     Dates: start: 20230107
  3. DIAZEPAM [Suspect]
     Active Substance: DIAZEPAM
     Indication: Product used for unknown indication
     Dosage: 200 MG, QD
     Route: 065
     Dates: start: 20230107
  4. LITHIUM [Suspect]
     Active Substance: LITHIUM
     Indication: Product used for unknown indication
     Dosage: 71 DF, QD (71 TABLETS OF 450 MG, I.E. 31,950 MG)
     Route: 065
     Dates: start: 20230107
  5. DULOXETINE HYDROCHLORIDE [Suspect]
     Active Substance: DULOXETINE HYDROCHLORIDE
     Indication: Product used for unknown indication
     Dosage: 60 DF, QD (1680 MG)
     Route: 065
     Dates: start: 20230107
  6. DOLIPRANE [Suspect]
     Active Substance: ACETAMINOPHEN
     Indication: Product used for unknown indication
     Dosage: 31 DF, QD
     Route: 065
     Dates: start: 20230107
  7. OXAZEPAM [Suspect]
     Active Substance: OXAZEPAM
     Indication: Product used for unknown indication
     Dosage: 20 DF, QD
     Route: 065
     Dates: start: 20230107

REACTIONS (4)
  - Poisoning deliberate [Unknown]
  - Mydriasis [Recovered/Resolved]
  - Confusional state [Recovered/Resolved]
  - Hypertonia [Recovered/Resolved]

NARRATIVE: CASE EVENT DATE: 20230107
